FAERS Safety Report 6937673-5 (Version None)
Quarter: 2010Q3

REPORT INFORMATION
  Report Type: 
  Country: None (occurrence: None)
  Receive Date: 20100820
  Receipt Date: 20100820
  Transmission Date: 20110219
  Serious: Yes (Other)
  Sender: FDA-Public Use
  Company Number: None

PATIENT
  Age: 31 Year
  Sex: Female
  Weight: 56.6996 kg

DRUGS (2)
  1. PREDNISONE [Suspect]
     Indication: ECZEMA
     Dosage: 20 MG EVERYDAY PO
     Route: 048
     Dates: start: 20100728, end: 20100817
  2. PREDNISONE [Suspect]
     Indication: HYPERSENSITIVITY
     Dosage: 20 MG EVERYDAY PO
     Route: 048
     Dates: start: 20100728, end: 20100817

REACTIONS (6)
  - DIZZINESS [None]
  - FATIGUE [None]
  - HEADACHE [None]
  - HEART RATE INCREASED [None]
  - MOOD SWINGS [None]
  - WEIGHT INCREASED [None]
